FAERS Safety Report 15773943 (Version 4)
Quarter: 2020Q2

REPORT INFORMATION
  Report Type: Spontaneous
  Country: US (occurrence: US)
  Receive Date: 20181229
  Receipt Date: 20200414
  Transmission Date: 20200713
  Serious: Yes (Other)
  Sender: FDA-Public Use
  Company Number: US-AMGEN INC.-USASP2018185065

PATIENT
  Sex: Male

DRUGS (3)
  1. BOTOX [Concomitant]
     Active Substance: ONABOTULINUMTOXINA
     Dosage: UNK UNK, Q8WK
  2. AIMOVIG [Suspect]
     Active Substance: ERENUMAB-AOOE
     Indication: PRODUCT USED FOR UNKNOWN INDICATION
     Dosage: UNK
     Route: 065
     Dates: start: 2018
  3. REGIME [ANANAS COMOSUS;CITRUS AURANTIUM;DAUCUS CAROTA;PASSIFLORA INCAR [Concomitant]
     Indication: MIGRAINE
     Dosage: UNK

REACTIONS (11)
  - Lethargy [Unknown]
  - Dizziness [Unknown]
  - Alopecia [Unknown]
  - Speech disorder [Unknown]
  - Thirst [Unknown]
  - Arthritis [Not Recovered/Not Resolved]
  - Balance disorder [Unknown]
  - Nausea [Unknown]
  - Fatigue [Unknown]
  - Therapeutic product effect incomplete [Unknown]
  - Skin discolouration [Unknown]

NARRATIVE: CASE EVENT DATE: 2018
